FAERS Safety Report 7883652-3 (Version None)
Quarter: 2011Q4

REPORT INFORMATION
  Report Type: 
  Country: None (occurrence: None)
  Receive Date: 20111031
  Receipt Date: 20111019
  Transmission Date: 20120403
  Serious: Yes (Hospitalization, Disabling)
  Sender: FDA-Public Use
  Company Number: DKLU1074259

PATIENT
  Age: 13 Year
  Sex: Female
  Weight: 64.6 kg

DRUGS (11)
  1. ERGOCALCIFEROL [Concomitant]
  2. ONFI [Suspect]
     Indication: CONVULSION
     Dates: start: 20091101, end: 20091205
  3. LEVETIRACETAM [Concomitant]
  4. TOPIRAMATE [Concomitant]
  5. VALPROATE SODIUM [Concomitant]
  6. ACETAMINOPHEN [Concomitant]
  7. CALCIUM CARBONATE [Concomitant]
  8. POTASSIUM CITRATE [Concomitant]
  9. CARBAMAZEPINE [Concomitant]
  10. HUMAN PAPILLOMA VIRUS VACCINE (HUMAN PAPILLOMA VACCINE) [Concomitant]
  11. FORTISIP (FORTISIP) [Concomitant]

REACTIONS (19)
  - DISTURBANCE IN ATTENTION [None]
  - CONFUSIONAL STATE [None]
  - RASH VESICULAR [None]
  - AGGRESSION [None]
  - MOOD ALTERED [None]
  - DECREASED APPETITE [None]
  - WEIGHT DECREASED [None]
  - SOMNOLENCE [None]
  - CONDITION AGGRAVATED [None]
  - GRAND MAL CONVULSION [None]
  - CONVULSION [None]
  - INAPPROPRIATE AFFECT [None]
  - POOR QUALITY SLEEP [None]
  - AUTOIMMUNE THYROIDITIS [None]
  - MALAISE [None]
  - PARTIAL SEIZURES [None]
  - RESTING TREMOR [None]
  - FEELING ABNORMAL [None]
  - ENCEPHALITIS [None]
